FAERS Safety Report 4460624-2 (Version None)
Quarter: 2004Q3

REPORT INFORMATION
  Report Type: 
  Country: None (occurrence: None)
  Receive Date: 20040928
  Receipt Date: 20040831
  Transmission Date: 20050211
  Serious: No
  Sender: FDA-Public Use
  Company Number: US-GLAXOSMITHKLINE-A0524080A

PATIENT
  Age: 69 Year
  Sex: Male

DRUGS (5)
  1. ADVAIR DISKUS 100/50 [Suspect]
     Indication: ASTHMA
     Dosage: 1PUFF TWICE PER DAY
     Route: 055
     Dates: start: 20040501
  2. GLUCOPHAGE [Concomitant]
  3. DIABETA [Concomitant]
  4. COSOPT [Concomitant]
  5. DIOVAN [Concomitant]

REACTIONS (3)
  - COUGH [None]
  - HOARSENESS [None]
  - OVERDOSE [None]
